FAERS Safety Report 8451972-X (Version None)
Quarter: 2012Q2

REPORT INFORMATION
  Report Type: 
  Country: None (occurrence: None)
  Receive Date: 20120620
  Receipt Date: 20120406
  Transmission Date: 20120825
  Serious: No
  Sender: FDA-Public Use
  Company Number: US-VERTEX PHARMACEUTICALS INC.-AE-2012-004441

PATIENT
  Sex: Male
  Weight: 99.88 kg

DRUGS (9)
  1. NORCO [Concomitant]
  2. PEGASYS [Concomitant]
     Indication: HEPATITIS C
     Route: 058
     Dates: start: 20120105
  3. RIBAVIRIN [Concomitant]
     Indication: HEPATITIS C
     Dates: start: 20120105
  4. PROTONIX [Concomitant]
  5. CARAFATE [Concomitant]
  6. AMITRIPTYLINE HCL [Concomitant]
  7. VISTARIL [Concomitant]
  8. INCIVEK [Suspect]
     Indication: HEPATITIS C
     Route: 048
     Dates: start: 20120105, end: 20120329
  9. CARAFATE [Concomitant]

REACTIONS (3)
  - ANAEMIA [None]
  - PRURITUS GENERALISED [None]
  - RASH PAPULAR [None]
